FAERS Safety Report 18499022 (Version 1)
Quarter: 2020Q4

REPORT INFORMATION
  Report Type: Spontaneous
  Country: GB (occurrence: GB)
  Receive Date: 20201113
  Receipt Date: 20201113
  Transmission Date: 20210114
  Serious: Yes (Other)
  Sender: FDA-Public Use
  Company Number: GB-SUN PHARMACEUTICAL INDUSTRIES LTD-2020R1-267480

PATIENT
  Age: 38 Year
  Sex: Female

DRUGS (5)
  1. INSULIN [Suspect]
     Active Substance: INSULIN NOS
     Indication: TYPE 1 DIABETES MELLITUS
     Dosage: UNK (BASAL-BOLUS)
     Route: 065
  2. LABETALOL [Suspect]
     Active Substance: LABETALOL\LABETALOL HYDROCHLORIDE
     Indication: GESTATIONAL HYPERTENSION
     Dosage: 200 MILLIGRAM, TID
     Route: 065
  3. INSULIN [Suspect]
     Active Substance: INSULIN NOS
     Dosage: VARIABLE RATE
     Route: 065
  4. METHYLDOPA. [Suspect]
     Active Substance: METHYLDOPA
     Indication: GESTATIONAL HYPERTENSION
     Dosage: 250 MILLIGRAM, TID
     Route: 065
  5. PROGESTERONE. [Suspect]
     Active Substance: PROGESTERONE
     Indication: PREMATURE LABOUR
     Dosage: 400 MILLIGRAM, DAILY
     Route: 067

REACTIONS (4)
  - Premature delivery [Unknown]
  - Neonatal disorder [Unknown]
  - Pre-eclampsia [Not Recovered/Not Resolved]
  - Exposure during pregnancy [Unknown]
